FAERS Safety Report 17822112 (Version 2)
Quarter: 2020Q3

REPORT INFORMATION
  Report Type: Spontaneous
  Country: US (occurrence: US)
  Receive Date: 20200526
  Receipt Date: 20200824
  Transmission Date: 20201102
  Serious: No
  Sender: FDA-Public Use
  Company Number: US-GLENMARK PHARMACEUTICALS-2020GMK046504

PATIENT

DRUGS (1)
  1. CLOBETASOL PROPIONATE CREAM USP, 0.05% [Suspect]
     Active Substance: CLOBETASOL PROPIONATE
     Indication: PSORIASIS
     Dosage: UNK, 2 TO 3 TIMES A DAY
     Route: 061

REACTIONS (3)
  - Product container issue [Unknown]
  - Product administration error [Unknown]
  - Drug ineffective [Unknown]
